FAERS Safety Report 7725864-5 (Version None)
Quarter: 2011Q3

REPORT INFORMATION
  Report Type: 
  Country: None (occurrence: None)
  Receive Date: 20110902
  Receipt Date: 20110823
  Transmission Date: 20111222
  Serious: Yes (Hospitalization)
  Sender: FDA-Public Use
  Company Number: US-SANOFI-AVENTIS-2011SA054599

PATIENT
  Age: 70 Year
  Sex: Male
  Weight: 72.6 kg

DRUGS (12)
  1. LISINOPRIL [Concomitant]
  2. ATORVASTATIN [Concomitant]
  3. KYTRIL [Concomitant]
  4. LOPERAMIDE HCL [Concomitant]
  5. ATENOLOL [Concomitant]
  6. FLUOROURACIL [Suspect]
     Route: 041
     Dates: start: 20110810
  7. LOMOTIL [Concomitant]
     Dosage: 2.5/0.025
  8. COUMADIN [Concomitant]
  9. DIGOXIN [Concomitant]
  10. OXALIPLATIN [Suspect]
     Route: 042
     Dates: start: 20110810, end: 20110810
  11. EPIRUBICIN [Suspect]
     Route: 042
     Dates: start: 20110810, end: 20110810
  12. FLUOROURACIL [Suspect]
     Route: 041
     Dates: start: 20110817, end: 20110819

REACTIONS (3)
  - HYPOKALAEMIA [None]
  - ATRIAL FIBRILLATION [None]
  - DIARRHOEA [None]
